FAERS Safety Report 7966940-1 (Version None)
Quarter: 2011Q4

REPORT INFORMATION
  Report Type: 
  Country: None (occurrence: None)
  Receive Date: 20111209
  Receipt Date: 20111206
  Transmission Date: 20120403
  Serious: Yes (Hospitalization)
  Sender: FDA-Public Use
  Company Number: IT-PFIZER INC-2011298489

PATIENT
  Age: 77 Year
  Sex: Male

DRUGS (3)
  1. MADOPAR [Concomitant]
  2. LYRICA [Suspect]
     Dosage: 75 MG, SINGLE
     Route: 048
     Dates: start: 20111106, end: 20111106
  3. OXYCONTIN [Suspect]
     Dosage: 80 MG, SINGLE
     Route: 048
     Dates: start: 20111106, end: 20111106

REACTIONS (4)
  - SOPOR [None]
  - MEDICATION ERROR [None]
  - PLEURISY [None]
  - ANURIA [None]
